FAERS Safety Report 7105520-7 (Version None)
Quarter: 2010Q4

REPORT INFORMATION
  Report Type: 
  Country: None (occurrence: None)
  Receive Date: 20101116
  Receipt Date: 20101103
  Transmission Date: 20110411
  Serious: Yes (Disabling, Other)
  Sender: FDA-Public Use
  Company Number: US-PFIZER INC-US-WYE-H17747810

PATIENT
  Sex: Female

DRUGS (8)
  1. EFFEXOR XR [Suspect]
     Dosage: 150 MG, 1X/DAY
  2. EFFEXOR XR [Suspect]
     Dosage: 300 MG, 1X/DAY
  3. NICOTINE [Concomitant]
     Route: 062
  4. PROPRANOLOL [Concomitant]
     Dosage: 20 MG, UNK
  5. CLONOPIN [Concomitant]
     Dosage: 1 MG, UNK
  6. ALEVE (CAPLET) [Concomitant]
  7. PROZAC [Concomitant]
     Dosage: 40 MG, 1X/DAY
  8. ATENOLOL [Concomitant]

REACTIONS (31)
  - ABDOMINAL DISTENSION [None]
  - ABDOMINAL PAIN UPPER [None]
  - ANGER [None]
  - ANXIETY [None]
  - ARTHRALGIA [None]
  - CHEST PAIN [None]
  - CHILLS [None]
  - CONSTIPATION [None]
  - DIARRHOEA [None]
  - DIZZINESS [None]
  - DRUG DEPENDENCE [None]
  - DRUG WITHDRAWAL SYNDROME [None]
  - HALLUCINATION, VISUAL [None]
  - HEADACHE [None]
  - HYPERHIDROSIS [None]
  - HYPERVIGILANCE [None]
  - INSOMNIA [None]
  - IRRITABILITY [None]
  - JOINT RANGE OF MOTION DECREASED [None]
  - MUSCLE TIGHTNESS [None]
  - MUSCLE TWITCHING [None]
  - MYALGIA [None]
  - NAUSEA [None]
  - NIGHTMARE [None]
  - PAIN [None]
  - PAIN IN EXTREMITY [None]
  - PARAESTHESIA [None]
  - RESTLESSNESS [None]
  - SWELLING [None]
  - UNEVALUABLE EVENT [None]
  - WEIGHT INCREASED [None]
